FAERS Safety Report 13927530 (Version 1)
Quarter: 2017Q3

REPORT INFORMATION
  Report Type: Spontaneous
  Country: US (occurrence: US)
  Receive Date: 20170831
  Receipt Date: 20170831
  Transmission Date: 20171127
  Serious: Yes (Other)
  Sender: FDA-Public Use
  Company Number: None

PATIENT
  Sex: Female
  Weight: 115.2 kg

DRUGS (16)
  1. METOPROLOL. [Concomitant]
     Active Substance: METOPROLOL
  2. TRAZODONE [Concomitant]
     Active Substance: TRAZODONE HYDROCHLORIDE
  3. LANTUS [Concomitant]
     Active Substance: INSULIN GLARGINE
  4. MAGNESIUM [Concomitant]
     Active Substance: MAGNESIUM
  5. MULTIVITAMIN GUMMIES [Concomitant]
  6. ATROVASTIN [Concomitant]
  7. CPAP [Concomitant]
     Active Substance: DEVICE
  8. OXYCODONE [Concomitant]
     Active Substance: OXYCODONE
  9. SEROQUEL [Concomitant]
     Active Substance: QUETIAPINE FUMARATE
  10. KLONOPIN [Concomitant]
     Active Substance: CLONAZEPAM
  11. MIRALAX [Concomitant]
     Active Substance: POLYETHYLENE GLYCOL 3350
  12. COQ10 [Concomitant]
     Active Substance: UBIDECARENONE
  13. LISINOPRIL. [Concomitant]
     Active Substance: LISINOPRIL
  14. QUETIAPINE FUMARATE. [Suspect]
     Active Substance: QUETIAPINE FUMARATE
     Indication: POST-TRAUMATIC STRESS DISORDER
     Dosage: ?          QUANTITY:60 TABLET(S);?
     Route: 048
     Dates: start: 20170724, end: 20170831
  15. LINZESS [Concomitant]
     Active Substance: LINACLOTIDE
  16. OMEGA 3 GUMMIES [Concomitant]

REACTIONS (1)
  - Bipolar disorder [None]

NARRATIVE: CASE EVENT DATE: 20170807
